FAERS Safety Report 5407259-2 (Version None)
Quarter: 2007Q3

REPORT INFORMATION
  Report Type: 
  Country: None (occurrence: None)
  Receive Date: 20070807
  Receipt Date: 20070727
  Transmission Date: 20080115
  Serious: Yes (Hospitalization)
  Sender: FDA-Public Use
  Company Number: B0480976A

PATIENT
  Age: 73 Year
  Sex: Male

DRUGS (1)
  1. FLIXONASE [Suspect]
     Indication: DRUG USE FOR UNKNOWN INDICATION

REACTIONS (2)
  - DEAFNESS [None]
  - DEAFNESS UNILATERAL [None]
